FAERS Safety Report 12231637 (Version 1)
Quarter: 2016Q2

REPORT INFORMATION
  Report Type: Spontaneous
  Country: US (occurrence: US)
  Receive Date: 20160401
  Receipt Date: 20160401
  Transmission Date: 20160815
  Serious: No
  Sender: FDA-Public Use
  Company Number: US-WARNER CHILCOTT, LLC-1050114

PATIENT
  Age: 55 Year
  Sex: Female

DRUGS (12)
  1. METHYLTESTOSTERONE. [Concomitant]
     Active Substance: METHYLTESTOSTERONE
  2. KLONOPIN [Concomitant]
     Active Substance: CLONAZEPAM
  3. ARMOUR THYROID [Concomitant]
     Active Substance: THYROID, PORCINE
  4. VITAMIN B COMPLEX [Concomitant]
     Active Substance: CYANOCOBALAMIN\DEXPANTHENOL\NIACINAMIDE\PYRIDOXINE HYDROCHLORIDE\RIBOFLAVIN 5^-PHOSPHATE SODIUM\THIAMINE HYDROCHLORIDE\VITAMIN B COMPLEX
  5. PROAIR HFA [Concomitant]
     Active Substance: ALBUTEROL SULFATE
  6. FISH OIL [Concomitant]
     Active Substance: FISH OIL
  7. ESTRADIOL. [Concomitant]
     Active Substance: ESTRADIOL
  8. VITAMIN D3DIETARY SUPPLEMEN DIETARY SUPPLEMENT [Concomitant]
     Active Substance: ALPHA-TOCOPHEROL\CHOLECALCIFEROL
  9. FEMRING [Suspect]
     Active Substance: ESTRADIOL ACETATE
     Route: 067
  10. FEMRING [Concomitant]
     Active Substance: ESTRADIOL ACETATE
     Route: 067
  11. ASA [Concomitant]
     Active Substance: ASPIRIN
  12. TOVIAZ [Concomitant]
     Active Substance: FESOTERODINE FUMARATE

REACTIONS (15)
  - Panic attack [Unknown]
  - Feeling abnormal [Unknown]
  - Poor quality sleep [Unknown]
  - Drug ineffective [Unknown]
  - Anxiety [Unknown]
  - Alopecia [Unknown]
  - Memory impairment [Unknown]
  - Depressed mood [Unknown]
  - Affect lability [Unknown]
  - Hot flush [Unknown]
  - Fatigue [Unknown]
  - Cognitive disorder [Unknown]
  - Headache [Unknown]
  - Apathy [Unknown]
  - Body temperature fluctuation [Unknown]

NARRATIVE: CASE EVENT DATE: 201412
